FAERS Safety Report 20443622 (Version 1)
Quarter: 2022Q1

REPORT INFORMATION
  Report Type: Spontaneous
  Country: US (occurrence: None)
  Receive Date: 20220208
  Receipt Date: 20220208
  Transmission Date: 20220423
  Serious: Yes (Death, Hospitalization)
  Sender: FDA-Public Use
  Company Number: None

PATIENT
  Age: 70 Year
  Sex: Female
  Weight: 87.7 kg

DRUGS (2)
  1. CARBOPLATIN [Suspect]
     Active Substance: CARBOPLATIN
     Dates: end: 20210915
  2. TAXOL [Suspect]
     Active Substance: PACLITAXEL
     Dates: end: 20210915

REACTIONS (3)
  - Unresponsive to stimuli [None]
  - Fall [None]
  - Cardiac disorder [None]

NARRATIVE: CASE EVENT DATE: 20220103
